FAERS Safety Report 4315607-X (Version None)
Quarter: 2004Q1

REPORT INFORMATION
  Report Type: 
  Country: None (occurrence: None)
  Receive Date: 20040311
  Receipt Date: 20010409
  Transmission Date: 20041129
  Serious: Yes (Other)
  Sender: FDA-Public Use
  Company Number: US-GLAXOSMITHKLINE-A0346375A

PATIENT
  Age: 31 Year
  Sex: Female

DRUGS (4)
  1. PAXIL [Suspect]
  2. ALCOHOL [Suspect]
     Route: 048
  3. ALPRAZOLAM [Concomitant]
  4. ZOLOFT [Concomitant]

REACTIONS (21)
  - ABNORMAL BEHAVIOUR [None]
  - AFFECTIVE DISORDER [None]
  - AMNESIA [None]
  - ANTISOCIAL BEHAVIOUR [None]
  - ANXIETY [None]
  - BRAIN DAMAGE [None]
  - DELUSION [None]
  - DEPRESSED MOOD [None]
  - DEPRESSION [None]
  - DRUG TOXICITY [None]
  - HALLUCINATION [None]
  - IMPAIRED WORK ABILITY [None]
  - JUDGEMENT IMPAIRED [None]
  - LOSS OF CONSCIOUSNESS [None]
  - MURDER [None]
  - NERVOUS SYSTEM DISORDER [None]
  - PANIC ATTACK [None]
  - PSYCHOTIC DISORDER [None]
  - SOCIAL PROBLEM [None]
  - SPEECH DISORDER [None]
  - SUICIDE ATTEMPT [None]
